FAERS Safety Report 6227621-8 (Version None)
Quarter: 2009Q2

REPORT INFORMATION
  Report Type: 
  Country: None (occurrence: None)
  Receive Date: 20090612
  Receipt Date: 20090610
  Transmission Date: 20091009
  Serious: Yes (Hospitalization)
  Sender: FDA-Public Use
  Company Number: US-RB-016701-09

PATIENT
  Age: 28 Year
  Sex: Female

DRUGS (8)
  1. SUBOXONE [Suspect]
     Route: 060
     Dates: start: 20090401, end: 20090401
  2. SUBOXONE [Suspect]
     Route: 060
     Dates: start: 20090201, end: 20090301
  3. SUBOXONE [Suspect]
     Route: 060
     Dates: start: 20081001, end: 20090101
  4. SUBOXONE [Suspect]
     Route: 060
     Dates: start: 20090101, end: 20090201
  5. SUBOXONE [Suspect]
     Route: 060
     Dates: start: 20090401, end: 20090401
  6. SUBOXONE [Suspect]
     Route: 060
     Dates: start: 20090401, end: 20090528
  7. SUBOXONE [Suspect]
     Route: 060
     Dates: start: 20090301, end: 20090401
  8. SEROQUEL [Concomitant]
     Dosage: DOSING INFORMATION UNKNOWN.
     Route: 065

REACTIONS (5)
  - CARDIAC FAILURE CONGESTIVE [None]
  - CARDIOMYOPATHY [None]
  - DRUG WITHDRAWAL SYNDROME [None]
  - OEDEMA PERIPHERAL [None]
  - WEIGHT INCREASED [None]
